FAERS Safety Report 8256654-5 (Version None)
Quarter: 2012Q2

REPORT INFORMATION
  Report Type: 
  Country: None (occurrence: None)
  Receive Date: 20120403
  Receipt Date: 20120328
  Transmission Date: 20120825
  Serious: Yes (Disabling, Other)
  Sender: FDA-Public Use
  Company Number: US-MERCK-1111USA00986

PATIENT
  Age: 58 Year
  Sex: Female

DRUGS (2)
  1. FOSAMAX [Suspect]
     Indication: OSTEOPENIA
     Route: 048
     Dates: start: 20050101, end: 20080701
  2. FOSAMAX [Suspect]
     Route: 048
     Dates: start: 20080101, end: 20101101

REACTIONS (8)
  - VASCULITIS [None]
  - LOW TURNOVER OSTEOPATHY [None]
  - HYPOPARATHYROIDISM [None]
  - ADVERSE EVENT [None]
  - FEMUR FRACTURE [None]
  - GASTROOESOPHAGEAL REFLUX DISEASE [None]
  - HYPOTHYROIDISM [None]
  - FRACTURE NONUNION [None]
